FAERS Safety Report 5909302-0 (Version None)
Quarter: 2008Q4

REPORT INFORMATION
  Report Type: 
  Country: None (occurrence: None)
  Receive Date: 20081006
  Receipt Date: 20080925
  Transmission Date: 20090506
  Serious: Yes (Life-Threatening)
  Sender: FDA-Public Use
  Company Number: US-BAXTER-2008BH010134

PATIENT

DRUGS (2)
  1. PHENERGAN HCL [Suspect]
     Indication: NAUSEA
     Route: 042
     Dates: start: 20080901, end: 20080901
  2. DILAUDID [Concomitant]
     Indication: DRUG USE FOR UNKNOWN INDICATION
     Dosage: DOSE UNIT:UNKNOWN
     Route: 065

REACTIONS (1)
  - CARDIO-RESPIRATORY ARREST [None]
